FAERS Safety Report 25675771 (Version 1)
Quarter: 2025Q3

REPORT INFORMATION
  Report Type: Spontaneous
  Country: EU (occurrence: EU)
  Receive Date: 20250813
  Receipt Date: 20250813
  Transmission Date: 20251021
  Serious: Yes (Other)
  Sender: TEVA
  Company Number: EU-EMB-M202400146-1

PATIENT
  Sex: Female
  Weight: 3.79 kg

DRUGS (8)
  1. LORATADINE [Suspect]
     Active Substance: LORATADINE
     Indication: Product used for unknown indication
     Route: 064
     Dates: start: 202401, end: 202409
  2. CEFUROXIME [Concomitant]
     Active Substance: CEFUROXIME
     Indication: Cystitis
     Route: 064
     Dates: start: 202403, end: 202403
  3. METHYLPREDNISOLONE ACEPONATE [Concomitant]
     Active Substance: METHYLPREDNISOLONE ACEPONATE
     Indication: Neurodermatitis
     Route: 064
     Dates: start: 202312, end: 202401
  4. BETAMETHASONE VALERATE [Suspect]
     Active Substance: BETAMETHASONE VALERATE
     Indication: Neurodermatitis
     Route: 064
     Dates: start: 202401, end: 202409
  5. URSODIOL [Suspect]
     Active Substance: URSODIOL
     Indication: Product used for unknown indication
     Route: 064
     Dates: start: 202408, end: 202408
  6. ABRYSVO [Concomitant]
     Active Substance: RECOMBINANT STABILIZED RSV A PREFUSION F ANTIGEN\RECOMBINANT STABILIZED RSV B PREFUSION F ANTIGEN
     Indication: Immunisation
     Route: 064
     Dates: start: 202407, end: 202407
  7. BOOSTRIX [Concomitant]
     Active Substance: TETANUS TOXOID, REDUCED DIPHTHERIA TOXOID AND ACELLULAR PERTUSSIS VACCINE ADSORBED, TDAP
     Indication: Immunisation
     Route: 064
     Dates: start: 202406, end: 202406
  8. MISOPROSTOL [Concomitant]
     Active Substance: MISOPROSTOL
     Indication: Labour induction
     Route: 064
     Dates: start: 202408, end: 202408

REACTIONS (3)
  - Nephrolithiasis [Unknown]
  - Foetal exposure during pregnancy [Unknown]
  - Congenital hydronephrosis [Unknown]
